FAERS Safety Report 14278515 (Version 1)
Quarter: 2017Q4

REPORT INFORMATION
  Report Type: Spontaneous
  Country: AT (occurrence: AT)
  Receive Date: 20171211
  Receipt Date: 20171211
  Transmission Date: 20180321
  Serious: Yes (Hospitalization)
  Sender: FDA-Public Use
  Company Number: AT-OTSUKA-DJ20128285

PATIENT
  Age: 47 Year
  Sex: Male

DRUGS (3)
  1. IXEL [Suspect]
     Active Substance: MILNACIPRAN HYDROCHLORIDE
     Indication: PANIC DISORDER
     Dosage: 150 MG, QD
     Route: 065
     Dates: start: 201111, end: 20120203
  2. SELOKEN [Concomitant]
     Active Substance: METOPROLOL
     Indication: PRODUCT USED FOR UNKNOWN INDICATION
     Dosage: UNK
     Route: 065
     Dates: start: 2007, end: 20120206
  3. ABILIFY [Suspect]
     Active Substance: ARIPIPRAZOLE
     Indication: PANIC DISORDER
     Dosage: 15 MG, QD
     Route: 065
     Dates: start: 201111, end: 20120203

REACTIONS (2)
  - Panic disorder [Recovering/Resolving]
  - Off label use [Unknown]
